FAERS Safety Report 9782833 (Version 1)
Quarter: 2013Q4

REPORT INFORMATION
  Report Type: Spontaneous
  Country: US (occurrence: US)
  Receive Date: 20131226
  Receipt Date: 20131226
  Transmission Date: 20140711
  Serious: No
  Sender: FDA-Public Use
  Company Number: US-ABBVIE-13P-163-1131568-00

PATIENT
  Age: 84 Year
  Sex: Male

DRUGS (2)
  1. LUPRON DEPOT [Suspect]
     Indication: PROSTATE CANCER
     Dates: start: 201003, end: 20101031
  2. RADIATION THERAPY [Concomitant]
     Indication: PROSTATE CANCER

REACTIONS (2)
  - Bone loss [Unknown]
  - Musculoskeletal pain [Unknown]
